FAERS Safety Report 9366290 (Version 1)
Quarter: 2013Q2

REPORT INFORMATION
  Report Type: Spontaneous
  Country: US (occurrence: US)
  Receive Date: 20130625
  Receipt Date: 20130625
  Transmission Date: 20140414
  Serious: No
  Sender: FDA-Public Use
  Company Number: US-GLAXOSMITHKLINE-A0985275A

PATIENT
  Age: 75 Year
  Sex: Female

DRUGS (6)
  1. VERAMYST [Suspect]
     Indication: SINUSITIS
     Dosage: 4SPR PER DAY
     Route: 045
     Dates: start: 20120605, end: 20120607
  2. COZAAR [Concomitant]
  3. PRAVACHOL [Concomitant]
  4. ALLOPURINOL [Concomitant]
  5. MULTIVITAMIN [Concomitant]
  6. ASPIRIN [Concomitant]

REACTIONS (2)
  - Pruritus [Recovered/Resolved]
  - Feeling abnormal [Unknown]
